FAERS Safety Report 16125375 (Version 2)
Quarter: 2019Q2

REPORT INFORMATION
  Report Type: Spontaneous
  Country: US (occurrence: US)
  Receive Date: 20190327
  Receipt Date: 20190604
  Transmission Date: 20190711
  Serious: Yes (Other)
  Sender: FDA-Public Use
  Company Number: US-AMGEN INC.-USASP2019048551

PATIENT

DRUGS (1)
  1. AIMOVIG [Suspect]
     Active Substance: ERENUMAB-AOOE
     Indication: MIGRAINE
     Dosage: UNK
     Route: 065
     Dates: start: 201805

REACTIONS (4)
  - Blindness [Unknown]
  - Hypoacusis [Unknown]
  - Chronic fatigue syndrome [Unknown]
  - Autonomic nervous system imbalance [Unknown]

NARRATIVE: CASE EVENT DATE: 201807
